FAERS Safety Report 19759884 (Version 2)
Quarter: 2021Q3

REPORT INFORMATION
  Report Type: Spontaneous
  Country: JP (occurrence: JP)
  Receive Date: 20210830
  Receipt Date: 20210929
  Transmission Date: 20211014
  Serious: Yes (Other)
  Sender: FDA-Public Use
  Company Number: JP-AMGEN-JPNCT2021132762

PATIENT

DRUGS (1)
  1. PANITUMUMAB [Suspect]
     Active Substance: PANITUMUMAB
     Indication: COLORECTAL CANCER METASTATIC
     Dosage: 6 MILLIGRAM/KILOGRAM, Q2WEEKS
     Route: 050

REACTIONS (18)
  - Adverse event [Unknown]
  - Infection [Unknown]
  - Dry skin [Unknown]
  - Palmar-plantar erythrodysaesthesia syndrome [Unknown]
  - Nausea [Unknown]
  - Skin toxicity [Unknown]
  - Pruritus [Unknown]
  - Febrile neutropenia [Unknown]
  - Dermatitis acneiform [Unknown]
  - Decreased appetite [Unknown]
  - Fatigue [Unknown]
  - Vomiting [Unknown]
  - Depilation [Unknown]
  - Stomatitis [Unknown]
  - Pyrexia [Unknown]
  - Neuropathy peripheral [Unknown]
  - Hypersensitivity [Unknown]
  - Diarrhoea [Unknown]
